FAERS Safety Report 8849463 (Version 1)
Quarter: 2012Q4

REPORT INFORMATION
  Report Type: Report from Study
  Country: JP (occurrence: JP)
  Receive Date: 20121019
  Receipt Date: 20121019
  Transmission Date: 20130627
  Serious: Yes (Hospitalization)
  Sender: FDA-Public Use
  Company Number: JP-VERTEX PHARMACEUTICAL INC.-AE-2012-007348

PATIENT
  Age: 70 Year
  Sex: Male

DRUGS (6)
  1. VX-950 [Suspect]
     Indication: HEPATITIS C
     Dosage: 1500 mg, qd
     Route: 048
     Dates: start: 20120323, end: 20120515
  2. VX-950 [Suspect]
     Dosage: 1500 mg, qd
     Route: 048
     Dates: start: 20120529, end: 20120619
  3. RIBAVIRIN [Concomitant]
     Dosage: 600 mg, qd
     Route: 048
     Dates: start: 20120323, end: 20120515
  4. RIBAVIRIN [Concomitant]
     Dosage: 600 mg, qd
     Route: 048
     Dates: start: 20120529, end: 20120904
  5. PEGINTRON                          /01543001/ [Concomitant]
     Dosage: 1.5 ?g/kg, UNK
     Route: 058
     Dates: start: 20120323, end: 20120511
  6. PEGINTRON                          /01543001/ [Concomitant]
     Dosage: 1.5 ?g/kg, UNK
     Route: 058
     Dates: start: 20120605, end: 20120904

REACTIONS (1)
  - Pneumonia legionella [Recovered/Resolved]
